FAERS Safety Report 6036482-1 (Version None)
Quarter: 2009Q1

REPORT INFORMATION
  Report Type: 
  Country: None (occurrence: None)
  Receive Date: 20090112
  Receipt Date: 20081229
  Transmission Date: 20090719
  Serious: Yes (Life-Threatening, Hospitalization)
  Sender: FDA-Public Use
  Company Number: 2009AL000074

PATIENT
  Age: 56 Year
  Sex: Male

DRUGS (9)
  1. METFORMIN HYDROCHLORIDE [Suspect]
     Indication: DIABETES MELLITUS
     Dosage: 1 GRAM, TID; PO
     Route: 048
  2. LOSARTAN POTASSIUM [Concomitant]
  3. AMLODIPINE [Concomitant]
  4. ACETYLSALICYLIC ACID SRT [Concomitant]
  5. ATORVASTATIN CALCIUM [Concomitant]
  6. BENDROFLUMETHIAZIDE [Concomitant]
  7. DOXAZOSIN MESYLATE [Concomitant]
  8. MINOCYCLINE HCL [Concomitant]
  9. SILDENAFIL CITRATE [Concomitant]

REACTIONS (3)
  - HAEMATEMESIS [None]
  - LACTIC ACIDOSIS [None]
  - RENAL FAILURE ACUTE [None]
